FAERS Safety Report 8554334-X (Version None)
Quarter: 2012Q3

REPORT INFORMATION
  Report Type: 
  Country: None (occurrence: None)
  Receive Date: 20120731
  Receipt Date: 20120717
  Transmission Date: 20120928
  Serious: No
  Sender: FDA-Public Use
  Company Number: US-009507513-2012SP030593

PATIENT

DRUGS (4)
  1. PROPARACAINE HYDROCHLORIDE [Suspect]
     Dosage: UNK, QW
     Route: 061
  2. INTRON A [Suspect]
     Indication: EXTRANODAL MARGINAL ZONE B-CELL LYMPHOMA (MALT TYPE)
     Dosage: UNK UNK, TIW
     Route: 057
  3. PROPARACAINE HYDROCHLORIDE [Suspect]
     Indication: INDUCTION OF ANAESTHESIA
     Dosage: UNK UNK, TIW
     Route: 061
  4. INTRON A [Suspect]
     Dosage: 1.5 MILLION IU, QW
     Route: 057

REACTIONS (3)
  - DECREASED APPETITE [None]
  - OFF LABEL USE [None]
  - INJECTION SITE DISCOMFORT [None]
